FAERS Safety Report 8452672-2 (Version None)
Quarter: 2012Q2

REPORT INFORMATION
  Report Type: 
  Country: None (occurrence: None)
  Receive Date: 20120620
  Receipt Date: 20120423
  Transmission Date: 20120825
  Serious: No
  Sender: FDA-Public Use
  Company Number: US-VERTEX PHARMACEUTICALS INC.-AE-2012-005810

PATIENT
  Sex: Male
  Weight: 60.836 kg

DRUGS (13)
  1. SUBOXONE [Concomitant]
  2. INCIVEK [Suspect]
     Indication: HEPATITIS C
     Route: 048
     Dates: start: 20120413
  3. RIBASPHERE [Concomitant]
     Indication: HEPATITIS C
     Dates: start: 20120413
  4. PREDNISONE TAB [Concomitant]
     Route: 048
  5. CALCIUM WITH VITAMIN D [Concomitant]
     Route: 048
  6. ZOLOFT [Concomitant]
     Route: 048
  7. PRILOSEC [Concomitant]
     Route: 048
  8. ALLOPURINNOL [Concomitant]
     Route: 048
  9. PEGASYS [Concomitant]
     Indication: HEPATITIS C
     Route: 058
     Dates: start: 20120413
  10. NORVASC [Concomitant]
     Route: 048
  11. CLARITIN [Concomitant]
     Route: 048
  12. COZAAR [Concomitant]
     Route: 048
  13. IBUPROFEN [Concomitant]
     Route: 048

REACTIONS (1)
  - NAUSEA [None]
